FAERS Safety Report 7461748-8 (Version None)
Quarter: 2011Q2

REPORT INFORMATION
  Report Type: 
  Country: None (occurrence: None)
  Receive Date: 20110506
  Receipt Date: 20090820
  Transmission Date: 20111010
  Serious: Yes (Death, Other)
  Sender: FDA-Public Use
  Company Number: US-BAYER-200930389NA

PATIENT
  Age: 63 Year
  Sex: Male
  Weight: 112.93 kg

DRUGS (18)
  1. DYAZIDE [Concomitant]
     Indication: INNER EAR DISORDER
     Dosage: LONG TERM USE
  2. VERSED [Concomitant]
     Dosage: 16 MG, UNK
     Route: 042
     Dates: start: 20061107
  3. TRASYLOL [Suspect]
     Indication: CORONARY ARTERY BYPASS
     Dosage: 1 ML, UNK
     Route: 042
     Dates: start: 20061107, end: 20061107
  4. TRASYLOL [Suspect]
     Dosage: 50CC/HR/200CC
     Route: 042
     Dates: start: 20061107, end: 20061107
  5. INTEGRILIN [Concomitant]
     Indication: ACUTE CORONARY SYNDROME
     Dosage: UNK
     Route: 042
     Dates: start: 20061101, end: 20061105
  6. PLAVIX [Concomitant]
     Indication: ACUTE CORONARY SYNDROME
     Dosage: 600 MG, UNK
     Route: 048
     Dates: start: 20061101, end: 20061103
  7. HEPARIN [Concomitant]
     Dosage: 5000 U, UNK
     Route: 042
     Dates: start: 20061107
  8. FLOMAX [Concomitant]
     Dosage: 0.4 MG, QD
  9. FENTANYL [Concomitant]
     Dosage: 30 UNK, UNK
     Route: 042
     Dates: start: 20061107
  10. BLEPHAMIDE [PREDNISOLONE ACETATE,SULFACETAMIDE SODIUM] [Concomitant]
     Indication: CONJUNCTIVITIS
     Dosage: UNK UNK, BID
     Dates: start: 20060925
  11. PAVULON [Concomitant]
     Dosage: 17 MG, UNK
     Route: 042
     Dates: start: 20061107
  12. TRASYLOL [Suspect]
     Dosage: 2000000 KIU, UNK
     Route: 042
     Dates: start: 20061107, end: 20061107
  13. ACETYLSALICYLIC ACID SRT [Concomitant]
     Indication: CARDIOVASCULAR DISORDER
     Dosage: 325 MG, QD
     Route: 048
     Dates: start: 20061027
  14. ANCEF [Concomitant]
     Dosage: 3 MG, UNK
     Route: 042
     Dates: start: 20061107
  15. AMICAR [Concomitant]
     Dosage: 5 G BOLUS IV, 1GM/HR UNK
     Route: 042
     Dates: start: 20061107, end: 20061109
  16. CRESTOR [Concomitant]
     Indication: HYPERCHOLESTEROLAEMIA
     Dosage: 10 MG, UNK
     Dates: start: 20060925
  17. ZOLOFT [Concomitant]
     Dosage: 150 MG LONG TERM USE, QD
  18. SOLU-MEDROL [Concomitant]
     Dosage: UNK
     Route: 042
     Dates: start: 20061107

REACTIONS (13)
  - STRESS [None]
  - DEATH [None]
  - MULTI-ORGAN FAILURE [None]
  - RENAL FAILURE [None]
  - RENAL IMPAIRMENT [None]
  - ANXIETY [None]
  - EMOTIONAL DISTRESS [None]
  - PAIN [None]
  - ANHEDONIA [None]
  - INJURY [None]
  - RENAL INJURY [None]
  - FEAR [None]
  - UNEVALUABLE EVENT [None]
